FAERS Safety Report 8402864-3 (Version None)
Quarter: 2012Q2

REPORT INFORMATION
  Report Type: 
  Country: None (occurrence: None)
  Receive Date: 20120601
  Receipt Date: 20120523
  Transmission Date: 20120825
  Serious: Yes (Hospitalization, Other)
  Sender: FDA-Public Use
  Company Number: US-VERTEX PHARMACEUTICALS INC.-AE-2012-007692

PATIENT
  Sex: Male

DRUGS (3)
  1. RIBAVIRIN [Concomitant]
     Indication: HEPATITIS C
     Dates: start: 20120210, end: 20120427
  2. PEGASYS [Concomitant]
     Indication: HEPATITIS C
  3. INCIVEK [Suspect]
     Indication: HEPATITIS C
     Dates: start: 20120210, end: 20120427

REACTIONS (5)
  - PANCREATITIS [None]
  - ASTHENIA [None]
  - PNEUMONIA [None]
  - HYPOTENSION [None]
  - WEIGHT DECREASED [None]
